FAERS Safety Report 11311045 (Version 1)
Quarter: 2015Q3

REPORT INFORMATION
  Report Type: Spontaneous
  Country: US (occurrence: US)
  Receive Date: 20150727
  Receipt Date: 20150727
  Transmission Date: 20151125
  Serious: Yes (Other)
  Sender: FDA-Public Use
  Company Number: US-ASTRAZENECA-2015SE71823

PATIENT
  Age: 55 Year
  Sex: Female
  Weight: 69.9 kg

DRUGS (18)
  1. LANTUS [Concomitant]
     Active Substance: INSULIN GLARGINE
     Dosage: 60 U HS
     Route: 058
  2. MAGIC MOUTHWASH [Concomitant]
     Active Substance: DIPHENHYDRAMINE HYDROCHLORIDE\LIDOCAINE HYDROCHLORIDE\NYSTATIN
     Dosage: 10 ML SWISH AND SWALLOW AC
     Route: 048
  3. PERCOCET [Concomitant]
     Active Substance: ACETAMINOPHEN\OXYCODONE HYDROCHLORIDE
     Dosage: 5 MG-325MG TABLET(S) TAKE 1 PO Q4H PRN PAIN
     Route: 048
  4. ANTINEOPLASTIC THERAPY [Suspect]
     Active Substance: UNSPECIFIED INGREDIENT
     Route: 065
  5. MUCINEX D [Concomitant]
     Active Substance: GUAIFENESIN\PSEUDOEPHEDRINE HYDROCHLORIDE
     Dosage: 600MG-60MG TABLET(S), SUSTAINED
     Route: 048
  6. VALAOYCLOVIR HCL [Concomitant]
     Dosage: 500 MG 1 PO Q 12 H.
     Route: 048
  7. FASLODEX [Suspect]
     Active Substance: FULVESTRANT
     Route: 030
  8. IBRANCE [Concomitant]
     Active Substance: PALBOCICLIB
     Dosage: 125 MG DAILY
     Route: 048
  9. TAMOXIFEN [Suspect]
     Active Substance: TAMOXIFEN
     Route: 048
  10. ACYCLOVIR. [Concomitant]
     Active Substance: ACYCLOVIR
     Dosage: 400 MG 1 DF  TID
     Route: 048
  11. SYNTHROID [Concomitant]
     Active Substance: LEVOTHYROXINE SODIUM
     Dosage: 75 MCG
     Route: 048
  12. ARIMIDEX [Suspect]
     Active Substance: ANASTROZOLE
     Route: 048
  13. AFINITOR [Concomitant]
     Active Substance: EVEROLIMUS
     Dosage: 5 MG 1 DF DAILY
     Route: 048
  14. HUMALOG [Concomitant]
     Active Substance: INSULIN LISPRO
     Dosage: TID
     Route: 058
  15. LIDOOAINE/8ENADRYUDECADRON/NYSTATIN [Concomitant]
     Dosage: LIQUID MOUTHWASH TAKE 1 TEASPOONFUL(S) SWISH AND SPIT QID
     Route: 048
  16. ZOFRAN [Concomitant]
     Active Substance: ONDANSETRON HYDROCHLORIDE
     Dosage: 8 MG 1 PO QSH PRN
     Route: 048
  17. LETROZOLE. [Concomitant]
     Active Substance: LETROZOLE
     Dosage: 2.5 MG DAILY
     Route: 048
  18. PROVENTIL [Concomitant]
     Active Substance: ALBUTEROL
     Dosage: 90 MCG HFA AEROSOL WITH ADAPTER (GM) TAKE 2 INHALATION PRN
     Route: 055

REACTIONS (4)
  - Mucosal inflammation [Unknown]
  - Cellulitis [Unknown]
  - Spondylitis [Unknown]
  - Malignant neoplasm progression [Unknown]
